FAERS Safety Report 4427488-4 (Version None)
Quarter: 2004Q3

REPORT INFORMATION
  Report Type: 
  Country: None (occurrence: None)
  Receive Date: 20040812
  Receipt Date: 20040803
  Transmission Date: 20050211
  Serious: Yes (Disabling)
  Sender: FDA-Public Use
  Company Number: URSO-2004-009

PATIENT
  Age: 71 Year
  Sex: Male

DRUGS (12)
  1. URSO [Suspect]
     Indication: CHOLELITHIASIS
     Dosage: 300 MG , PO
     Route: 048
     Dates: start: 20000201, end: 20040501
  2. THEO-DUR [Suspect]
     Indication: ASTHMA
     Dosage: 400 MG ; PO
     Route: 048
     Dates: start: 20040101, end: 20040510
  3. CAMOSTATE (CAMOSTATE MESILATE) [Suspect]
     Indication: CHOLELITHIASIS
     Dosage: 400 MG; PO
     Route: 048
     Dates: start: 20000201, end: 20040510
  4. GALLE DONAU (NICOTINIC ACID, ANPHTHYLACETIC ACID) [Suspect]
     Indication: CHOLELITHIASIS
     Dosage: 6 TABLETS; PO
     Route: 048
     Dates: start: 20000301, end: 20040510
  5. CIMETRAN (CLIMETIDINE) [Suspect]
     Indication: GASTRIC ULCER
     Dosage: 600 MG; PO
     Route: 048
     Dates: start: 20020201, end: 20040510
  6. BISOLVON (BROMOHEXINE HYDROCHLORIDE) [Suspect]
     Indication: ASTHMA
     Dosage: 12 MG , PO
     Route: 048
     Dates: start: 20040101, end: 20040510
  7. SINGULAIR [Suspect]
     Indication: ASTHMA
     Dosage: 10 MG; PO
     Route: 048
     Dates: start: 20040101, end: 20040510
  8. CLARITHROMYCIN [Suspect]
     Indication: PNEUMONIA
     Dosage: 400 MG, PO
     Route: 048
     Dates: start: 20040503, end: 20040510
  9. FORIT (OXYPERTINE) [Suspect]
     Indication: SCHIZOPHRENIA
     Dosage: 20 MG; PO
     Route: 048
  10. GALLE DONAU (NICOTINIC ACID. NAPHTHYL ACETYLACETIC ACID) [Concomitant]
  11. UNASYN-S (OXYPERTINE) [Concomitant]
  12. TIENAM (IMIPENEM, CILASTATIN SODIUM) [Concomitant]

REACTIONS (7)
  - ABDOMINAL PAIN [None]
  - ANOREXIA [None]
  - CHEST PAIN [None]
  - HAEMOGLOBIN DECREASED [None]
  - HAEMOLYTIC ANAEMIA [None]
  - JAUNDICE [None]
  - PNEUMONIA [None]
